FAERS Safety Report 6903268-2 (Version None)
Quarter: 2010Q3

REPORT INFORMATION
  Report Type: 
  Country: None (occurrence: None)
  Receive Date: 20100803
  Receipt Date: 20080819
  Transmission Date: 20110219
  Serious: Yes (Other)
  Sender: FDA-Public Use
  Company Number: US-PFIZER INC-2008060427

PATIENT
  Sex: Female
  Weight: 60.3 kg

DRUGS (6)
  1. LYRICA [Suspect]
     Indication: EPILEPSY
     Route: 048
     Dates: start: 20080604, end: 20080731
  2. LYRICA [Suspect]
     Indication: CONVULSION
  3. DILANTIN [Concomitant]
  4. LAMICTAL [Concomitant]
  5. LORAZEPAM [Concomitant]
  6. MORPHINE [Concomitant]

REACTIONS (2)
  - OEDEMA [None]
  - PAIN IN EXTREMITY [None]
